FAERS Safety Report 9626938 (Version 1)
Quarter: 2013Q4

REPORT INFORMATION
  Report Type: Spontaneous
  Country: US (occurrence: None)
  Receive Date: 20131011
  Receipt Date: 20131011
  Transmission Date: 20140711
  Serious: Yes (Death)
  Sender: FDA-Public Use
  Company Number: 2013AP008605

PATIENT
  Age: 43 Year
  Sex: Female

DRUGS (3)
  1. TRAZODONE HYDROCHLORIDE TABLETS USP [Suspect]
     Route: 048
  2. CITALOPRAM [Suspect]
     Route: 048
  3. ALPRAZOLAM [Suspect]
     Route: 048

REACTIONS (1)
  - Drug abuse [None]
